FAERS Safety Report 5301311-8 (Version None)
Quarter: 2007Q2

REPORT INFORMATION
  Report Type: 
  Country: None (occurrence: None)
  Receive Date: 20070418
  Receipt Date: 20070411
  Transmission Date: 20071010
  Serious: Yes (Other)
  Sender: FDA-Public Use
  Company Number: SG-PFIZER INC-2007028943

PATIENT
  Age: 70 Year
  Sex: Female

DRUGS (4)
  1. SULFASALAZINE [Suspect]
     Route: 048
     Dates: start: 20060303, end: 20060407
  2. ENALAPRIL MALEATE [Suspect]
     Route: 048
     Dates: start: 20060322, end: 20060407
  3. ATENOLOL [Concomitant]
     Dosage: DAILY DOSE:75MG
     Route: 048
  4. PREDNISOLONE [Concomitant]
     Dosage: DAILY DOSE:8MG
     Route: 048

REACTIONS (2)
  - KERATOCONJUNCTIVITIS SICCA [None]
  - RASH MACULO-PAPULAR [None]
